FAERS Safety Report 4954129-X (Version None)
Quarter: 2006Q1

REPORT INFORMATION
  Report Type: 
  Country: None (occurrence: None)
  Receive Date: 20060327
  Receipt Date: 20060313
  Transmission Date: 20060701
  Serious: Yes (Hospitalization)
  Sender: FDA-Public Use
  Company Number: 2006004506

PATIENT
  Age: 90 Year
  Sex: Female
  Weight: 80 kg

DRUGS (4)
  1. QUILONUM RETARD [Suspect]
     Dosage: 450MG SEE DOSAGE TEXT
     Route: 048
  2. NEUROCIL [Suspect]
     Dosage: 1TAB SEE DOSAGE TEXT
     Route: 048
  3. SAROTEN [Suspect]
     Dosage: 25MG SEE DOSAGE TEXT
     Route: 048
  4. TIMONIL RETARD [Suspect]
     Dosage: 600MG SEE DOSAGE TEXT
     Route: 048

REACTIONS (5)
  - BRADYARRHYTHMIA [None]
  - DIZZINESS [None]
  - MEDICATION ERROR [None]
  - SOMNOLENCE [None]
  - SYSTOLIC HYPERTENSION [None]
